FAERS Safety Report 17043036 (Version 1)
Quarter: 2019Q4

REPORT INFORMATION
  Report Type: Spontaneous
  Country: PT (occurrence: PT)
  Receive Date: 20191118
  Receipt Date: 20191118
  Transmission Date: 20200122
  Serious: Yes (Hospitalization, Other)
  Sender: FDA-Public Use
  Company Number: PT-BAYER-2019-200880

PATIENT
  Age: 71 Year
  Sex: Female

DRUGS (1)
  1. CIPROFLOXACIN. [Suspect]
     Active Substance: CIPROFLOXACIN
     Indication: INTERVERTEBRAL DISCITIS
     Dosage: UNK
     Dates: start: 2017

REACTIONS (4)
  - Seizure [None]
  - Iatrogenic injury [None]
  - Subarachnoid haemorrhage [Recovered/Resolved]
  - Seizure [None]

NARRATIVE: CASE EVENT DATE: 201808
